FAERS Safety Report 17747874 (Version 2)
Quarter: 2022Q3

REPORT INFORMATION
  Report Type: Spontaneous
  Country: US (occurrence: None)
  Receive Date: 20200505
  Receipt Date: 20220711
  Transmission Date: 20221027
  Serious: Yes (Other)
  Sender: FDA-Public Use
  Company Number: US-ROCHE-2517817

PATIENT
  Sex: Female

DRUGS (4)
  1. ESBRIET [Suspect]
     Active Substance: PIRFENIDONE
     Indication: Pulmonary hypertension
     Dosage: 3 CAPSULE THRICE A DAY
     Route: 048
     Dates: start: 20171025
  2. ESBRIET [Suspect]
     Active Substance: PIRFENIDONE
     Indication: Pulmonary hypertension
     Route: 048
     Dates: start: 20220208
  3. PREDNISONE [Concomitant]
     Active Substance: PREDNISONE
  4. PROLIA [Concomitant]
     Active Substance: DENOSUMAB

REACTIONS (5)
  - Off label use [Unknown]
  - Nausea [Unknown]
  - Vomiting [Unknown]
  - Diarrhoea [Unknown]
  - Crohn^s disease [Unknown]
